FAERS Safety Report 6712212-2 (Version None)
Quarter: 2010Q2

REPORT INFORMATION
  Report Type: 
  Country: None (occurrence: None)
  Receive Date: 20100505
  Receipt Date: 20100426
  Transmission Date: 20101027
  Serious: Yes (Hospitalization)
  Sender: FDA-Public Use
  Company Number: BR-ABBOTT-10P-020-0641390-00

PATIENT
  Age: 65 Year
  Sex: Male

DRUGS (1)
  1. KLARICID UD TABLETS [Suspect]
     Indication: SINUSITIS
     Route: 048

REACTIONS (2)
  - DRUG INEFFECTIVE [None]
  - PATHOGEN RESISTANCE [None]
